FAERS Safety Report 12360312 (Version 1)
Quarter: 2016Q2

REPORT INFORMATION
  Report Type: Spontaneous
  Country: FR (occurrence: FR)
  Receive Date: 20160512
  Receipt Date: 20160512
  Transmission Date: 20160815
  Serious: Yes (Disabling, Other)
  Sender: FDA-Public Use
  Company Number: FR-JNJFOC-20160507130

PATIENT
  Sex: Female

DRUGS (3)
  1. SERTRALINE [Concomitant]
     Active Substance: SERTRALINE HYDROCHLORIDE
     Indication: PRODUCT USED FOR UNKNOWN INDICATION
     Route: 065
  2. PRAZEPAM [Concomitant]
     Active Substance: PRAZEPAM
     Indication: PRODUCT USED FOR UNKNOWN INDICATION
     Route: 065
  3. HALDOL DECANOATE [Suspect]
     Active Substance: HALOPERIDOL DECANOATE
     Indication: SCHIZOPHRENIA
     Dosage: INITIATED 8 MONTHS AGO
     Route: 030

REACTIONS (9)
  - Off label use [Unknown]
  - Diplopia [Unknown]
  - Eating disorder [Unknown]
  - Delirium [Unknown]
  - Injection site nodule [Unknown]
  - Impaired driving ability [Unknown]
  - Muscle contracture [Unknown]
  - Weight increased [Unknown]
  - Pain [Unknown]
